FAERS Safety Report 6649526-0 (Version None)
Quarter: 2010Q1

REPORT INFORMATION
  Report Type: 
  Country: None (occurrence: None)
  Receive Date: 20100324
  Receipt Date: 20091229
  Transmission Date: 20100710
  Serious: No
  Sender: FDA-Public Use
  Company Number: US-AMGEN-KDL382858

PATIENT
  Sex: Female

DRUGS (5)
  1. NPLATE [Suspect]
     Indication: IDIOPATHIC THROMBOCYTOPENIC PURPURA
     Dates: start: 20091215
  2. METFORMIN HCL [Concomitant]
  3. SYNTHROID [Concomitant]
  4. ACTOS [Concomitant]
  5. ZOCOR [Concomitant]

REACTIONS (4)
  - ARTHRALGIA [None]
  - FEELING ABNORMAL [None]
  - FIBROMYALGIA [None]
  - PAIN [None]
